FAERS Safety Report 6093078-3 (Version None)
Quarter: 2009Q1

REPORT INFORMATION
  Report Type: 
  Country: None (occurrence: None)
  Receive Date: 20090224
  Receipt Date: 20090224
  Transmission Date: 20090719
  Serious: Yes (Life-Threatening, Hospitalization)
  Sender: FDA-Public Use
  Company Number: None

PATIENT
  Age: 59 Year
  Sex: Male
  Weight: 79.3795 kg

DRUGS (8)
  1. WARFARIN SODIUM 5 MG TARO PHARMACEUTICALS, HAIFA BAY, ISRAEL [Suspect]
     Indication: INTRACARDIAC THROMBUS
     Dosage: 5 MG DAILY ORAL 047
     Route: 048
     Dates: start: 20081023, end: 20090131
  2. ASPIRIN [Concomitant]
  3. POTASSIUM CHLORIDE [Concomitant]
  4. LISINOPRIL [Concomitant]
  5. CARVEDILOL [Concomitant]
  6. SIMVASTATIN [Concomitant]
  7. LASIX [Concomitant]
  8. SPIRONOLACTONE [Concomitant]

REACTIONS (5)
  - ANAEMIA [None]
  - DEHYDRATION [None]
  - HYPOTENSION [None]
  - RENAL FAILURE [None]
  - UPPER GASTROINTESTINAL HAEMORRHAGE [None]
